FAERS Safety Report 16891160 (Version 1)
Quarter: 2019Q4

REPORT INFORMATION
  Report Type: Spontaneous
  Country: US (occurrence: US)
  Receive Date: 20191004
  Receipt Date: 20191004
  Transmission Date: 20200122
  Serious: Yes (Life-Threatening, Hospitalization)
  Sender: FDA-Public Use
  Company Number: None

PATIENT
  Age: 32 Year
  Sex: Female
  Weight: 59 kg

DRUGS (1)
  1. TYSABRI [Suspect]
     Active Substance: NATALIZUMAB
     Indication: MULTIPLE SCLEROSIS
     Route: 041

REACTIONS (5)
  - Progressive multifocal leukoencephalopathy [None]
  - Hemianopia homonymous [None]
  - Depressed mood [None]
  - Generalised tonic-clonic seizure [None]
  - JC polyomavirus test positive [None]

NARRATIVE: CASE EVENT DATE: 20190725
